FAERS Safety Report 5904321-2 (Version None)
Quarter: 2008Q3

REPORT INFORMATION
  Report Type: 
  Country: None (occurrence: None)
  Receive Date: 20080930
  Receipt Date: 20080930
  Transmission Date: 20090109
  Serious: No
  Sender: FDA-Public Use
  Company Number: None

PATIENT
  Age: 50 Year
  Sex: Male
  Weight: 58.9676 kg

DRUGS (2)
  1. LIPITOR [Suspect]
  2. LOVASTATIN [Suspect]

REACTIONS (1)
  - MUSCULAR WEAKNESS [None]
